FAERS Safety Report 5169754-3 (Version None)
Quarter: 2006Q4

REPORT INFORMATION
  Report Type: 
  Country: None (occurrence: None)
  Receive Date: 20061212
  Receipt Date: 20061122
  Transmission Date: 20070319
  Serious: Yes (Hospitalization, Other)
  Sender: FDA-Public Use
  Company Number: PHBS2006JP18343

PATIENT
  Age: 3 Year
  Sex: Male

DRUGS (3)
  1. CYCLOSPORINE [Suspect]
     Indication: HEART TRANSPLANT
     Route: 065
  2. AZATHIOPRINE [Suspect]
     Indication: HEART TRANSPLANT
     Route: 065
  3. CELLCEPT [Concomitant]
     Route: 065

REACTIONS (4)
  - ABDOMINAL NEOPLASM [None]
  - ABDOMINAL PAIN [None]
  - BONE MARROW FAILURE [None]
  - DIFFUSE LARGE B-CELL LYMPHOMA [None]
